FAERS Safety Report 16282306 (Version 3)
Quarter: 2020Q3

REPORT INFORMATION
  Report Type: Spontaneous
  Country: US (occurrence: US)
  Receive Date: 20190507
  Receipt Date: 20200924
  Transmission Date: 20201102
  Serious: Yes (Other)
  Sender: FDA-Public Use
  Company Number: US-ALEXION PHARMACEUTICALS INC.-A201906622

PATIENT
  Age: 49 Year
  Sex: Female

DRUGS (2)
  1. STRENSIQ [Suspect]
     Active Substance: ASFOTASE ALFA
     Indication: OFF LABEL USE
  2. STRENSIQ [Suspect]
     Active Substance: ASFOTASE ALFA
     Indication: HYPOPHOSPHATASIA
     Dosage: 69 MG, QD FOR 6DAYS/WEEK
     Route: 065

REACTIONS (10)
  - Blood alkaline phosphatase decreased [Unknown]
  - Nausea [Unknown]
  - Gastrointestinal disorder [Unknown]
  - Dizziness [Unknown]
  - Vomiting [Unknown]
  - Hypersensitivity [Unknown]
  - Off label use [Recovered/Resolved]
  - Syncope [Unknown]
  - Anaphylactic reaction [Unknown]
  - Vitamin B6 decreased [Unknown]
